FAERS Safety Report 4945742-4 (Version None)
Quarter: 2006Q1

REPORT INFORMATION
  Report Type: 
  Country: None (occurrence: None)
  Receive Date: 20060316
  Receipt Date: 20060310
  Transmission Date: 20060701
  Serious: Yes (Death, Hospitalization)
  Sender: FDA-Public Use
  Company Number: FR-AVENTIS-200610944FR

PATIENT
  Age: 74 Year
  Sex: Male
  Weight: 85 kg

DRUGS (8)
  1. RIFADIN [Suspect]
     Indication: SEPSIS
     Route: 048
     Dates: start: 20050902, end: 20050915
  2. RIFADIN [Suspect]
     Indication: ARTHRITIS BACTERIAL
     Route: 048
     Dates: start: 20050902, end: 20050915
  3. RIFADIN [Suspect]
     Indication: ARTHRITIS BACTERIAL
     Route: 048
     Dates: start: 20050902, end: 20050915
  4. CLINDAMYCIN HCL [Suspect]
     Indication: SEPSIS
     Route: 048
     Dates: start: 20050902, end: 20050915
  5. CLINDAMYCIN HCL [Suspect]
     Indication: ARTHRITIS BACTERIAL
     Route: 048
     Dates: start: 20050902, end: 20050915
  6. CLINDAMYCIN HCL [Suspect]
     Indication: ARTHRITIS BACTERIAL
     Route: 048
     Dates: start: 20050902, end: 20050915
  7. VANCOMYCIN [Concomitant]
     Dates: start: 20050701, end: 20050901
  8. GENTAMYCIN SULFATE [Concomitant]
     Dates: start: 20050701, end: 20050901

REACTIONS (9)
  - EOSINOPHILIA [None]
  - HAEMODIALYSIS [None]
  - MULTI-ORGAN FAILURE [None]
  - NEPHRITIS INTERSTITIAL [None]
  - RENAL FAILURE ACUTE [None]
  - RENAL TUBULAR DISORDER [None]
  - RENAL TUBULAR NECROSIS [None]
  - SEPSIS [None]
  - SHOCK [None]
